FAERS Safety Report 6541240-5 (Version None)
Quarter: 2010Q1

REPORT INFORMATION
  Report Type: 
  Country: None (occurrence: None)
  Receive Date: 20100118
  Receipt Date: 20100111
  Transmission Date: 20100710
  Serious: Yes (Hospitalization)
  Sender: FDA-Public Use
  Company Number: TR-ELI_LILLY_AND_COMPANY-TR201001001572

PATIENT
  Age: 42 Year
  Sex: Female

DRUGS (4)
  1. HUMALOG [Suspect]
     Indication: DIABETES MELLITUS
     Dosage: 20 IU, DAILY (1/D)
     Route: 058
     Dates: start: 20090801
  2. LANTUS [Concomitant]
     Dosage: 12 IU, EACH MORNING
     Route: 058
  3. LANTUS [Concomitant]
     Dosage: 12 IU, EACH EVENING
     Route: 058
  4. TEFOR [Concomitant]
     Indication: THYROID DISORDER
     Dosage: 0.1 MG, DAILY (1/D)

REACTIONS (3)
  - ABDOMINAL DISCOMFORT [None]
  - PYREXIA [None]
  - SWELLING [None]
